FAERS Safety Report 10147171 (Version 1)
Quarter: 2014Q2

REPORT INFORMATION
  Report Type: Spontaneous
  Country: BR (occurrence: BR)
  Receive Date: 20140501
  Receipt Date: 20140501
  Transmission Date: 20141212
  Serious: Yes (Other)
  Sender: FDA-Public Use
  Company Number: PHHY2014BR050222

PATIENT
  Age: 79 Year
  Sex: Female

DRUGS (2)
  1. VISKALDIX [Suspect]
     Dosage: UNK UKN, UNK
  2. LOSARTAN [Suspect]
     Dosage: UNK UKN, UNK

REACTIONS (7)
  - Single functional kidney [Unknown]
  - Fluid retention [Unknown]
  - Urine output decreased [Unknown]
  - Anaemia [Unknown]
  - Blood pressure increased [Unknown]
  - Oedema peripheral [Unknown]
  - Drug ineffective [Unknown]
